FAERS Safety Report 18434280 (Version 2)
Quarter: 2020Q4

REPORT INFORMATION
  Report Type: Spontaneous
  Country: CO (occurrence: CO)
  Receive Date: 20201028
  Receipt Date: 20201218
  Transmission Date: 20210114
  Serious: Yes (Other)
  Sender: FDA-Public Use
  Company Number: CO-AUROBINDO-AUR-APL-2020-054376

PATIENT
  Age: 4 Year
  Sex: Male
  Weight: 15 kg

DRUGS (8)
  1. MIDAZOLAM. [Concomitant]
     Active Substance: MIDAZOLAM
     Indication: PRODUCT USED FOR UNKNOWN INDICATION
     Dosage: 5 MILLIGRAM, EVERY HOUR
     Route: 042
     Dates: start: 20201004, end: 20201110
  2. MEROGRAM 1000 MG INJECTION USP [Suspect]
     Active Substance: MEROPENEM
     Indication: ENCEPHALITIS AUTOIMMUNE
  3. PHENOBARBITONE [Concomitant]
     Active Substance: PHENOBARBITAL
     Indication: PRODUCT USED FOR UNKNOWN INDICATION
     Dosage: 51 MILLIGRAM, TWO TIMES A DAY
     Route: 042
     Dates: start: 20201008, end: 20201022
  4. LEVETIRACETAM. [Concomitant]
     Active Substance: LEVETIRACETAM
     Indication: PRODUCT USED FOR UNKNOWN INDICATION
     Dosage: 300 MILLIGRAM, TWO TIMES A DAY
     Route: 042
     Dates: start: 20201004, end: 20201023
  5. DIPIRONE [Concomitant]
     Active Substance: METAMIZOLE SODIUM
     Indication: PRODUCT USED FOR UNKNOWN INDICATION
     Dosage: 0.340 GRAM, FOUR TIMES/DAY
     Route: 042
     Dates: start: 20201014, end: 20201021
  6. MEROGRAM 1000 MG INJECTION USP [Suspect]
     Active Substance: MEROPENEM
     Indication: URINARY TRACT INFECTION
     Dosage: 680 MILLIGRAM/ 8 HOURS
     Route: 042
     Dates: start: 20201017, end: 20201022
  7. OMEPRAZOLE. [Concomitant]
     Active Substance: OMEPRAZOLE
     Indication: PRODUCT USED FOR UNKNOWN INDICATION
     Dosage: 40 MILLIGRAM, ONCE A DAY
     Route: 042
     Dates: start: 20201004, end: 20201020
  8. AMIKACIN. [Concomitant]
     Active Substance: AMIKACIN
     Indication: PRODUCT USED FOR UNKNOWN INDICATION
     Dosage: 255 MILLIGRAM, ONCE A DAY
     Route: 042
     Dates: start: 20201019, end: 20201021

REACTIONS (1)
  - Treatment failure [Unknown]

NARRATIVE: CASE EVENT DATE: 20201017
